FAERS Safety Report 20386948 (Version 1)
Quarter: 2022Q1

REPORT INFORMATION
  Report Type: Spontaneous
  Country: US (occurrence: US)
  Receive Date: 20220127
  Receipt Date: 20220127
  Transmission Date: 20220424
  Serious: No
  Sender: FDA-Public Use
  Company Number: US-ALLERGAN-2115010US

PATIENT
  Sex: Female

DRUGS (3)
  1. BOTOX COSMETIC [Suspect]
     Active Substance: ONABOTULINUMTOXINA
     Indication: Skin wrinkling
     Dosage: 32 UNITS, SINGLE
     Dates: start: 20210224, end: 20210224
  2. BOTOX COSMETIC [Suspect]
     Active Substance: ONABOTULINUMTOXINA
     Dosage: UNK, SINGLE
     Dates: start: 20210224, end: 20210224
  3. COVID-19 VACCINE [Concomitant]
     Dosage: UNK
     Dates: start: 20210223, end: 20210223

REACTIONS (1)
  - Eyelid ptosis [Unknown]
